FAERS Safety Report 21130678 (Version 1)
Quarter: 2022Q3

REPORT INFORMATION
  Report Type: Spontaneous
  Country: US (occurrence: None)
  Receive Date: 20220725
  Receipt Date: 20220725
  Transmission Date: 20221027
  Serious: Yes (Death)
  Sender: FDA-Public Use
  Company Number: None

PATIENT
  Sex: Male

DRUGS (2)
  1. PHOSPHOLINE IODIDE [Suspect]
     Active Substance: ECHOTHIOPHATE IODIDE
     Indication: Open angle glaucoma
     Dosage: 0.125%  OPHTHALMIC??INSTILL ONE DROP IN BOTH EYES TWICE DAILY DISCARD 28 DAYS AFTER RECONSTITUTED ?
     Route: 047
     Dates: start: 20220629
  2. PHOSPHOLINE IODIDE [Suspect]
     Active Substance: ECHOTHIOPHATE IODIDE
     Dosage: FREQUENCY : AS DIRECTED;?
     Route: 047

REACTIONS (1)
  - COVID-19 [None]
